FAERS Safety Report 22090159 (Version 1)
Quarter: 2023Q1

REPORT INFORMATION
  Report Type: Other
  Country: None (occurrence: ID)
  Receive Date: 20230313
  Receipt Date: 20230313
  Transmission Date: 20230418
  Serious: Yes (Hospitalization, Other)
  Sender: FDA-Public Use
  Company Number: ID-B.Braun Medical Inc.-2138999

PATIENT
  Sex: Male

DRUGS (1)
  1. HEPARIN SODIUM IN DEXTROSE [Suspect]
     Active Substance: HEPARIN SODIUM
     Indication: Deep vein thrombosis
     Route: 042

REACTIONS (1)
  - Drug ineffective [Unknown]
